FAERS Safety Report 6904029-0 (Version None)
Quarter: 2010Q3

REPORT INFORMATION
  Report Type: 
  Country: None (occurrence: None)
  Receive Date: 20100804
  Receipt Date: 20090225
  Transmission Date: 20110219
  Serious: No
  Sender: FDA-Public Use
  Company Number: US-PFIZER INC-2009160627

PATIENT
  Sex: Female
  Weight: 84.8 kg

DRUGS (8)
  1. LYRICA [Suspect]
     Indication: BACK PAIN
     Dosage: 50 MG, 2X/DAY
     Route: 048
     Dates: start: 20090124
  2. NEURONTIN [Suspect]
     Indication: POST HERPETIC NEURALGIA
     Dosage: UNK
  3. STROVITE [Concomitant]
     Dosage: UNK
  4. VITAMIN TAB [Concomitant]
  5. VASOTEC [Concomitant]
  6. ASPIRIN [Concomitant]
  7. PROTECTIVES AGAINST UV-RADIATION [Concomitant]
  8. CHEMOTHERAPY NOS [Concomitant]

REACTIONS (1)
  - HEAD DISCOMFORT [None]
